FAERS Safety Report 11595531 (Version 3)
Quarter: 2015Q4

REPORT INFORMATION
  Report Type: Spontaneous
  Country: US (occurrence: US)
  Receive Date: 20151006
  Receipt Date: 20151104
  Transmission Date: 20160304
  Serious: Yes (Other)
  Sender: FDA-Public Use
  Company Number: US-AMGEN-USASP2015102153

PATIENT
  Age: 19 Year
  Sex: Female
  Weight: 78 kg

DRUGS (2)
  1. NPLATE [Suspect]
     Active Substance: ROMIPLOSTIM
     Indication: IMMUNE THROMBOCYTOPENIC PURPURA
     Dosage: 10 MUG/KG, UNK
     Route: 065
     Dates: start: 20150107, end: 20150924
  2. ORTHO-NOVUM [Concomitant]
     Active Substance: ETHINYL ESTRADIOL\NORETHINDRONE
     Indication: MENSTRUAL DISORDER
     Dosage: 1/35 TAB
     Route: 048
     Dates: start: 20140106

REACTIONS (8)
  - Platelet count decreased [Unknown]
  - Pain in extremity [Unknown]
  - Off label use [Unknown]
  - Device issue [Unknown]
  - Condition aggravated [Unknown]
  - Drug effect decreased [Unknown]
  - Purpura [Unknown]
  - Petechiae [Unknown]

NARRATIVE: CASE EVENT DATE: 2015
